FAERS Safety Report 13135599 (Version 3)
Quarter: 2017Q1

REPORT INFORMATION
  Report Type: Spontaneous
  Country: US (occurrence: US)
  Receive Date: 20170120
  Receipt Date: 20170222
  Transmission Date: 20170428
  Serious: Yes (Hospitalization)
  Sender: FDA-Public Use
  Company Number: US-UNITED THERAPEUTICS-UNT-2016-019995

PATIENT
  Age: 84 Year
  Sex: Female
  Weight: 66.67 kg

DRUGS (3)
  1. AMLODIPINE [Concomitant]
     Active Substance: AMLODIPINE BESYLATE
     Indication: PRODUCT USED FOR UNKNOWN INDICATION
  2. ADCIRCA [Concomitant]
     Active Substance: TADALAFIL
     Indication: PRODUCT USED FOR UNKNOWN INDICATION
  3. REMODULIN [Suspect]
     Active Substance: TREPROSTINIL
     Indication: PULMONARY HYPERTENSION
     Dosage: 0.042 ?G/KG, CONTINUING
     Route: 041
     Dates: start: 20060329

REACTIONS (4)
  - Pancytopenia [Unknown]
  - Myelodysplastic syndrome [Unknown]
  - Gastrointestinal haemorrhage [Not Recovered/Not Resolved]
  - Haemorrhagic arteriovenous malformation [Not Recovered/Not Resolved]

NARRATIVE: CASE EVENT DATE: 201612
